FAERS Safety Report 7596432-3 (Version None)
Quarter: 2011Q3

REPORT INFORMATION
  Report Type: 
  Country: None (occurrence: None)
  Receive Date: 20110707
  Receipt Date: 20110704
  Transmission Date: 20111222
  Serious: Yes (Other)
  Sender: FDA-Public Use
  Company Number: FR-BRISTOL-MYERS SQUIBB COMPANY-15870470

PATIENT
  Age: 52 Year
  Sex: Male

DRUGS (7)
  1. REYATAZ [Suspect]
     Indication: HIV INFECTION
     Route: 048
     Dates: start: 20091216, end: 20110209
  2. PLAVIX [Concomitant]
     Indication: MYOCARDIAL INFARCTION
     Route: 048
  3. FOSAVANCE [Concomitant]
     Indication: OSTEOPOROTIC FRACTURE
     Dosage: 1DF=0.1429 UNIT NOS
     Route: 048
  4. CRESTOR [Concomitant]
     Indication: MYOCARDIAL INFARCTION
     Dosage: 10 MG FILM-COATED TABLET
     Route: 048
  5. TRUVADA [Concomitant]
     Indication: HIV INFECTION
     Dosage: 1DF:200 MG/245 MG FILM-COATED TABLET
     Route: 048
     Dates: start: 20090309
  6. BISOPROLOL FUMARATE [Concomitant]
     Indication: MYOCARDIAL INFARCTION
     Dosage: FORMULATION:BIOGARAN 5 MG DIVISIBLE TABLET
     Route: 048
  7. NORVIR [Suspect]
     Indication: HIV INFECTION
     Route: 048
     Dates: start: 20091216, end: 20110209

REACTIONS (1)
  - GYNAECOMASTIA [None]
